FAERS Safety Report 4531235-5 (Version None)
Quarter: 2004Q4

REPORT INFORMATION
  Report Type: 
  Country: None (occurrence: None)
  Receive Date: 20041206
  Receipt Date: 20041019
  Transmission Date: 20050328
  Serious: No
  Sender: FDA-Public Use
  Company Number: US_0409106099

PATIENT
  Age: 42 Year
  Sex: Female
  Weight: 61 kg

DRUGS (5)
  1. CYMBALTA [Suspect]
     Indication: MAJOR DEPRESSION
     Dosage: 30 MG DAY
     Dates: start: 20040914
  2. PROZAC [Suspect]
     Indication: DEPRESSION
     Dosage: 40 MG DAY
     Dates: start: 19910101
  3. FLUOXETINE [Concomitant]
  4. LISINOPRIL [Concomitant]
  5. LAMISIL [Concomitant]

REACTIONS (8)
  - ABDOMINAL DISTENSION [None]
  - APATHY [None]
  - CONSTIPATION [None]
  - DRUG INEFFECTIVE [None]
  - FATIGUE [None]
  - HEADACHE [None]
  - HYPERSOMNIA [None]
  - NAUSEA [None]
